FAERS Safety Report 9883873 (Version 2)
Quarter: 2014Q1

REPORT INFORMATION
  Report Type: Spontaneous
  Country: UA (occurrence: UA)
  Receive Date: 20140210
  Receipt Date: 20140210
  Transmission Date: 20141002
  Serious: No
  Sender: FDA-Public Use
  Company Number: UA-SA-2014SA010779

PATIENT
  Age: 27 Year
  Sex: Female

DRUGS (2)
  1. CEREZYME [Suspect]
     Indication: GAUCHER^S DISEASE
     Dosage: DOSE:30 UNIT(S)/KILOGRAM BODYWEIGHT
     Route: 042
     Dates: start: 20080721
  2. CEREZYME [Suspect]
     Indication: GAUCHER^S DISEASE

REACTIONS (6)
  - Abdominal distension [Unknown]
  - Conjunctival hyperaemia [Unknown]
  - Dizziness [Unknown]
  - Asthenia [Recovering/Resolving]
  - Abdominal discomfort [Unknown]
  - Dyspnoea [Unknown]
